FAERS Safety Report 22211968 (Version 1)
Quarter: 2023Q2

REPORT INFORMATION
  Report Type: Spontaneous
  Country: US (occurrence: None)
  Receive Date: 20230411
  Receipt Date: 20230411
  Transmission Date: 20230722
  Serious: Yes (Life-Threatening, Hospitalization)
  Sender: FDA-Public Use
  Company Number: None

PATIENT
  Age: 35 Year
  Sex: Female

DRUGS (1)
  1. KETAMINE [Suspect]
     Active Substance: KETAMINE

REACTIONS (4)
  - Mental status changes [None]
  - Hypoxia [None]
  - Salivary hypersecretion [None]
  - Rhonchi [None]

NARRATIVE: CASE EVENT DATE: 20230408
